FAERS Safety Report 6810511-7 (Version None)
Quarter: 2010Q2

REPORT INFORMATION
  Report Type: 
  Country: None (occurrence: None)
  Receive Date: 20100630
  Receipt Date: 20100624
  Transmission Date: 20101027
  Serious: Yes (Other)
  Sender: FDA-Public Use
  Company Number: BR-PFIZER INC-2010079384

PATIENT
  Age: 59 Year
  Sex: Male

DRUGS (5)
  1. LIPITOR [Suspect]
     Indication: BLOOD CHOLESTEROL
     Dosage: 40 MG, 1X/DAY
     Route: 048
     Dates: start: 20090824
  2. LIPITOR [Suspect]
     Dosage: 20 MG, 1X/DAY
  3. BENICAR [Concomitant]
     Dosage: UNK
     Dates: start: 20091201
  4. ASPIRIN [Concomitant]
     Dosage: UNK
     Dates: start: 20091201
  5. ZETIA [Concomitant]
     Dosage: UNK
     Dates: start: 20091201

REACTIONS (2)
  - LIVER INJURY [None]
  - VENOUS OCCLUSION [None]
